FAERS Safety Report 12232995 (Version 1)
Quarter: 2016Q2

REPORT INFORMATION
  Report Type: Spontaneous
  Country: US (occurrence: US)
  Receive Date: 20160403
  Receipt Date: 20160403
  Transmission Date: 20160815
  Serious: Yes (Death, Hospitalization)
  Sender: FDA-Public Use
  Company Number: US-IPCA LABORATORIES LIMITED-IPC201501-000009

PATIENT
  Age: 57 Year
  Sex: Female
  Weight: 62.13 kg

DRUGS (4)
  1. BENICAR [Suspect]
     Active Substance: OLMESARTAN MEDOXOMIL
     Indication: HYPERTENSION
     Route: 048
     Dates: start: 2004, end: 20141205
  2. CAPECITABINE+BLINDED STUDY DRUG [Suspect]
     Active Substance: CAPECITABINE
     Route: 048
     Dates: start: 20141113
  3. CAPECITABINE+BLINDED STUDY DRUG [Suspect]
     Active Substance: CAPECITABINE
     Indication: PANCREATIC CARCINOMA METASTATIC
     Route: 048
     Dates: start: 20141113, end: 20141205
  4. METFORMIN HYDROCHLORIDE. [Suspect]
     Active Substance: METFORMIN HYDROCHLORIDE
     Indication: DIABETES MELLITUS
     Route: 048
     Dates: start: 2004, end: 20141205

REACTIONS (4)
  - Acute kidney injury [Fatal]
  - Palmar-plantar erythrodysaesthesia syndrome [None]
  - Mucosal inflammation [None]
  - Dehydration [None]

NARRATIVE: CASE EVENT DATE: 20141205
